FAERS Safety Report 18737647 (Version 1)
Quarter: 2021Q1

REPORT INFORMATION
  Report Type: Spontaneous
  Country: CA (occurrence: CA)
  Receive Date: 20210113
  Receipt Date: 20210113
  Transmission Date: 20210419
  Serious: Yes (Other)
  Sender: FDA-Public Use
  Company Number: CA-ABBVIE-21K-028-3728184-00

PATIENT
  Sex: Female
  Weight: 75 kg

DRUGS (1)
  1. HUMIRA [Suspect]
     Active Substance: ADALIMUMAB
     Indication: PRODUCT USED FOR UNKNOWN INDICATION
     Route: 058
     Dates: start: 202005

REACTIONS (11)
  - Wound dehiscence [Unknown]
  - Breast mass [Not Recovered/Not Resolved]
  - Basedow^s disease [Unknown]
  - Erythema [Unknown]
  - Swelling [Unknown]
  - Scar [Unknown]
  - Pain [Unknown]
  - Nodule [Not Recovered/Not Resolved]
  - Skin lesion [Not Recovered/Not Resolved]
  - Abscess [Unknown]
  - Sinus disorder [Unknown]

NARRATIVE: CASE EVENT DATE: 2020
